FAERS Safety Report 6114915-X (Version None)
Quarter: 2009Q1

REPORT INFORMATION
  Report Type: 
  Country: None (occurrence: None)
  Receive Date: 20090313
  Receipt Date: 20090306
  Transmission Date: 20090719
  Serious: Yes (Death)
  Sender: FDA-Public Use
  Company Number: GB-TEVA-186999ISR

PATIENT
  Sex: Female

DRUGS (1)
  1. CISPLATIN [Suspect]
     Indication: CERVIX CARCINOMA
     Dates: end: 20060301

REACTIONS (2)
  - AORTIC THROMBOSIS [None]
  - INTESTINAL ISCHAEMIA [None]
